FAERS Safety Report 13682801 (Version 1)
Quarter: 2017Q2

REPORT INFORMATION
  Report Type: Spontaneous
  Country: US (occurrence: US)
  Receive Date: 20170623
  Receipt Date: 20170623
  Transmission Date: 20170830
  Serious: No
  Sender: FDA-Public Use
  Company Number: US-MALLINCKRODT-T201700204

PATIENT
  Sex: Female

DRUGS (2)
  1. H.P. ACTHAR [Suspect]
     Active Substance: CORTICOTROPIN
     Indication: SYSTEMIC LUPUS ERYTHEMATOSUS
     Dosage: 80 UNITS/ML, 1 ML THREE TIMES WEEKLY
     Route: 030
     Dates: start: 20170104
  2. H.P. ACTHAR [Suspect]
     Active Substance: CORTICOTROPIN
     Dosage: 80 UNITS / 1 ML
     Route: 058
     Dates: start: 20170117

REACTIONS (6)
  - Pyrexia [Not Recovered/Not Resolved]
  - Urticaria [Unknown]
  - Injection site pain [Unknown]
  - Injection site bruising [Not Recovered/Not Resolved]
  - Injection site pruritus [Unknown]
  - Vomiting [Not Recovered/Not Resolved]
